FAERS Safety Report 8379660-9 (Version None)
Quarter: 2012Q2

REPORT INFORMATION
  Report Type: 
  Country: None (occurrence: None)
  Receive Date: 20120523
  Receipt Date: 20120521
  Transmission Date: 20120825
  Serious: Yes (Other)
  Sender: FDA-Public Use
  Company Number: CA-JNJFOC-20120311584

PATIENT
  Sex: Female

DRUGS (1)
  1. NICODERM [Suspect]
     Indication: SMOKING CESSATION THERAPY
     Route: 062

REACTIONS (1)
  - HYPERSENSITIVITY [None]
